FAERS Safety Report 22294774 (Version 5)
Quarter: 2023Q4

REPORT INFORMATION
  Report Type: Report from Study
  Country: CA (occurrence: CA)
  Receive Date: 20230508
  Receipt Date: 20231007
  Transmission Date: 20240110
  Serious: Yes (Other)
  Sender: FDA-Public Use
  Company Number: CA-TAKEDA-2023TUS044160

PATIENT
  Age: 19 Year
  Sex: Female

DRUGS (4)
  1. VEDOLIZUMAB [Suspect]
     Active Substance: VEDOLIZUMAB
     Indication: Colitis ulcerative
     Dosage: 300 MILLIGRAM
     Route: 042
     Dates: start: 20230427
  2. VEDOLIZUMAB [Suspect]
     Active Substance: VEDOLIZUMAB
     Indication: Colitis ulcerative
     Dosage: 108 MILLIGRAM, Q2WEEKS
     Route: 058
     Dates: start: 2023
  3. MESALAMINE [Concomitant]
     Active Substance: MESALAMINE
     Dosage: 4800 MILLIGRAM
     Dates: start: 20191230
  4. Salofalk [Concomitant]
     Dosage: UNK

REACTIONS (12)
  - Colitis ulcerative [Unknown]
  - Syncope [Unknown]
  - Faeces soft [Unknown]
  - Anxiety [Unknown]
  - Arthropod bite [Unknown]
  - Feeling of body temperature change [Unknown]
  - Blood pressure systolic decreased [Unknown]
  - Syringe issue [Unknown]
  - Urinary tract infection [Unknown]
  - Abdominal pain [Unknown]
  - Dizziness [Unknown]
  - Constipation [Unknown]

NARRATIVE: CASE EVENT DATE: 20230602
